FAERS Safety Report 7393042-8 (Version None)
Quarter: 2011Q2

REPORT INFORMATION
  Report Type: 
  Country: None (occurrence: None)
  Receive Date: 20110404
  Receipt Date: 20110324
  Transmission Date: 20111010
  Serious: Yes (Hospitalization, Disabling, Other)
  Sender: FDA-Public Use
  Company Number: US-ASTRAZENECA-2010SE33982

PATIENT
  Age: 24526 Day
  Sex: Female

DRUGS (3)
  1. CRESTOR [Suspect]
     Route: 048
  2. GENERIC ZOCOR [Concomitant]
  3. NEXIUM [Suspect]
     Indication: GASTRITIS
     Route: 048

REACTIONS (3)
  - MEMORY IMPAIRMENT [None]
  - CEREBROVASCULAR ACCIDENT [None]
  - DYSPEPSIA [None]
